FAERS Safety Report 21150404 (Version 1)
Quarter: 2022Q3

REPORT INFORMATION
  Report Type: Report from Study
  Country: KR (occurrence: KR)
  Receive Date: 20220729
  Receipt Date: 20220729
  Transmission Date: 20221026
  Serious: Yes (Other)
  Sender: FDA-Public Use
  Company Number: KR-TAKEDA-2022TUS050865

PATIENT
  Age: 80 Year
  Sex: Female

DRUGS (3)
  1. MOBOCERTINIB [Suspect]
     Active Substance: MOBOCERTINIB
     Indication: Non-small cell lung cancer
     Dosage: 160 MILLIGRAM, QD
     Route: 048
     Dates: start: 20220119, end: 20220715
  2. CODEINE [Concomitant]
     Active Substance: CODEINE
     Dosage: 20 MILLIGRAM
     Route: 048
     Dates: start: 20220616
  3. OXYCODONE [Concomitant]
     Active Substance: OXYCODONE
     Dosage: 25 MILLIGRAM
     Route: 048
     Dates: start: 20220525

REACTIONS (1)
  - Non-small cell lung cancer [Unknown]
